FAERS Safety Report 10403174 (Version 6)
Quarter: 2014Q4

REPORT INFORMATION
  Report Type: Report from Study
  Country: NZ (occurrence: NZ)
  Receive Date: 20140822
  Receipt Date: 20141219
  Transmission Date: 20150528
  Serious: Yes (Death)
  Sender: FDA-Public Use
  Company Number: NZ-B.I. PHARMACEUTICALS,INC./RIDGEFIELD-2014-BI-38258BI

PATIENT
  Age: 61 Year
  Sex: Male
  Weight: 125 kg

DRUGS (1)
  1. BI 655075 [Suspect]
     Active Substance: IDARUCIZUMAB
     Indication: UPPER GASTROINTESTINAL HAEMORRHAGE
     Dosage: FORMULATION: INJECTION, DOSE PER APPLICATION AND DAILY DOSE: 5G/100 ML IN 2 DOSES
     Route: 042
     Dates: start: 20140814, end: 20140814

REACTIONS (1)
  - Respiratory failure [Fatal]

NARRATIVE: CASE EVENT DATE: 20140815
